FAERS Safety Report 15042324 (Version 2)
Quarter: 2018Q3

REPORT INFORMATION
  Report Type: Spontaneous
  Country: IT (occurrence: IT)
  Receive Date: 20180621
  Receipt Date: 20180810
  Transmission Date: 20181010
  Serious: Yes (Hospitalization, Other)
  Sender: FDA-Public Use
  Company Number: IT-AUROBINDO-AUR-APL-2018-031412

PATIENT
  Age: 23 Year
  Sex: Male

DRUGS (3)
  1. ZARELIS [Concomitant]
     Active Substance: VENLAFAXINE HYDROCHLORIDE
     Indication: DEPRESSION
     Dosage: 1 DOSAGE FORM
     Route: 048
     Dates: start: 20150101
  2. QUETIAPINE AUROBINDO FILM?COATED TABLETS 25MG [Suspect]
     Active Substance: QUETIAPINE
     Indication: BIPOLAR DISORDER
     Dosage: 10 DOSAGE FORM, IN TOTAL
     Route: 048
     Dates: start: 20180522, end: 20180522
  3. ALPRAZOLAM. [Suspect]
     Active Substance: ALPRAZOLAM
     Indication: ANXIETY
     Dosage: 40 DOSAGE FORM, IN TOTAL
     Route: 048
     Dates: start: 20180522, end: 20180522

REACTIONS (2)
  - Sopor [Recovered/Resolved]
  - Drug abuse [Recovered/Resolved]

NARRATIVE: CASE EVENT DATE: 20180522
